FAERS Safety Report 9672046 (Version 1)
Quarter: 2013Q4

REPORT INFORMATION
  Report Type: Spontaneous
  Country: CH (occurrence: CH)
  Receive Date: 20131106
  Receipt Date: 20131106
  Transmission Date: 20140711
  Serious: Yes (Hospitalization)
  Sender: FDA-Public Use
  Company Number: CH-GLAXOSMITHKLINE-B0940010A

PATIENT
  Age: 78 Year
  Sex: Female

DRUGS (10)
  1. ZINACEF [Suspect]
     Indication: PROPHYLAXIS
     Dosage: 1.5G PER DAY
     Route: 040
     Dates: start: 20130823, end: 20130823
  2. DISOPRIVAN [Suspect]
     Indication: ANAESTHESIA
     Route: 042
     Dates: start: 20130823, end: 20130823
  3. FENTANYL [Suspect]
     Indication: ANAESTHESIA
     Route: 042
     Dates: start: 20130823, end: 20130823
  4. CISATRACURIUM [Suspect]
     Indication: ANAESTHESIA
     Dosage: 10MG PER DAY
     Route: 040
     Dates: start: 20130823, end: 20130823
  5. CHLORHEXIDINE [Suspect]
     Indication: PROPHYLAXIS
     Route: 061
     Dates: start: 20130823, end: 20130823
  6. DIAMICRON [Concomitant]
     Indication: TYPE 2 DIABETES MELLITUS
     Dosage: 60MG PER DAY
     Route: 048
  7. ASPIRINE [Concomitant]
     Indication: PROPHYLAXIS
     Dosage: 100MG PER DAY
     Route: 048
  8. APROVEL [Concomitant]
     Indication: ESSENTIAL HYPERTENSION
     Dosage: 300MG PER DAY
     Route: 048
  9. METFORMIN HYDROCHLORIDE [Concomitant]
     Indication: TYPE 2 DIABETES MELLITUS
     Dosage: 500MG PER DAY
     Route: 048
  10. ZOLPIDEM [Concomitant]
     Dosage: 10MG PER DAY
     Route: 048

REACTIONS (3)
  - Type I hypersensitivity [Recovered/Resolved]
  - Hypotension [Recovered/Resolved]
  - Supraventricular tachycardia [Recovered/Resolved]
